FAERS Safety Report 16021900 (Version 1)
Quarter: 2019Q1

REPORT INFORMATION
  Report Type: Report from Study
  Country: None (occurrence: CO)
  Receive Date: 20190301
  Receipt Date: 20190301
  Transmission Date: 20190418
  Serious: Yes (Hospitalization, Other)
  Sender: FDA-Public Use
  Company Number: CO-ABBVIE-19K-036-2684599-00

PATIENT
  Age: 71 Year
  Sex: Female
  Weight: 67 kg

DRUGS (4)
  1. ANGIOVAN [Concomitant]
     Indication: PRODUCT USED FOR UNKNOWN INDICATION
  2. HUMIRA [Suspect]
     Active Substance: ADALIMUMAB
     Indication: RHEUMATOID ARTHRITIS
     Route: 058
  3. HUMIRA [Suspect]
     Active Substance: ADALIMUMAB
     Indication: RHEUMATOID ARTHRITIS
     Route: 058
     Dates: start: 20081112
  4. DOLOFLEX [Concomitant]
     Indication: PRODUCT USED FOR UNKNOWN INDICATION

REACTIONS (3)
  - Haematoma [Recovering/Resolving]
  - Hypoaesthesia [Recovering/Resolving]
  - Varicose vein [Recovering/Resolving]

NARRATIVE: CASE EVENT DATE: 201801
